FAERS Safety Report 6932294-2 (Version None)
Quarter: 2010Q3

REPORT INFORMATION
  Report Type: 
  Country: None (occurrence: None)
  Receive Date: 20100819
  Receipt Date: 20100816
  Transmission Date: 20110219
  Serious: Yes (Other)
  Sender: FDA-Public Use
  Company Number: KR-ROCHE-721605

PATIENT
  Age: 33 Year
  Sex: Female

DRUGS (2)
  1. RIBAVIRIN [Suspect]
     Route: 065
  2. PEG-INTERFERON ALPHA 2B [Suspect]
     Route: 065

REACTIONS (2)
  - AUTOIMMUNE THYROIDITIS [None]
  - DIABETIC KETOACIDOSIS [None]
